FAERS Safety Report 8765331 (Version 1)
Quarter: 2012Q4

REPORT INFORMATION
  Report Type: 
  Country: US (occurrence: US)
  Receive Date: 20120831
  Receipt Date: 20120831
  Transmission Date: 20130627
  Serious: Yes (Life-Threatening, Hospitalization)
  Sender: FDA-Public Use
  Company Number: US-JNJFOC-20120814319

PATIENT
  Sex: Male

DRUGS (10)
  1. NUCYNTA [Suspect]
     Indication: BACK PAIN
     Dosage: 4 times daily
     Route: 048
  2. ALPHAGAN [Concomitant]
     Route: 065
  3. LASIX [Concomitant]
     Dosage: a day
     Route: 065
  4. HYDROCHLOROTHIAZIDE [Concomitant]
     Route: 065
  5. XALATAN [Concomitant]
     Route: 047
  6. MELATONIN [Concomitant]
     Route: 065
  7. METFORMIN [Concomitant]
     Route: 065
  8. PERCOCET [Concomitant]
     Route: 065
  9. ROPINIROLE [Concomitant]
     Route: 065
  10. TRAZODONE [Concomitant]
     Route: 065

REACTIONS (4)
  - Diverticular perforation [Recovering/Resolving]
  - Abscess [Recovering/Resolving]
  - Peritonitis [Recovering/Resolving]
  - Atrial fibrillation [Unknown]
